FAERS Safety Report 5747570-9 (Version None)
Quarter: 2008Q2

REPORT INFORMATION
  Report Type: 
  Country: None (occurrence: None)
  Receive Date: 20080523
  Receipt Date: 20080515
  Transmission Date: 20081010
  Serious: Yes (Death)
  Sender: FDA-Public Use
  Company Number: US-JNJFOC-20071206194

PATIENT
  Sex: Female
  Weight: 82.56 kg

DRUGS (1)
  1. REMICADE [Suspect]
     Indication: CROHN'S DISEASE
     Dosage: 2 INFUSIONS ON UNSPECIFIED DATES.
     Route: 042

REACTIONS (1)
  - PNEUMONIA LEGIONELLA [None]
